FAERS Safety Report 7237771-5 (Version None)
Quarter: 2011Q1

REPORT INFORMATION
  Report Type: 
  Country: None (occurrence: None)
  Receive Date: 20110118
  Receipt Date: 20110103
  Transmission Date: 20110831
  Serious: Yes (Hospitalization, Other)
  Sender: FDA-Public Use
  Company Number: ACO_21283_2011

PATIENT
  Age: 67 Year
  Sex: Female
  Weight: 68.5 kg

DRUGS (4)
  1. AMPYRA [Suspect]
     Indication: GAIT DISTURBANCE
     Dosage: 10 MG, BID, ORAL
     Route: 048
     Dates: start: 20100601, end: 20101201
  2. AMANTADINE HCL [Concomitant]
  3. AMITRIPTYLINE HYDROCHLORIDE [Concomitant]
  4. AVONEX [Concomitant]

REACTIONS (4)
  - THIRST [None]
  - URINARY TRACT INFECTION [None]
  - FALL [None]
  - RENAL DISORDER [None]
